FAERS Safety Report 11796358 (Version 3)
Quarter: 2016Q1

REPORT INFORMATION
  Report Type: Spontaneous
  Country: US (occurrence: US)
  Receive Date: 20151203
  Receipt Date: 20160108
  Transmission Date: 20160525
  Serious: Yes (Hospitalization)
  Sender: FDA-Public Use
  Company Number: US-PFIZER INC-2015419748

PATIENT
  Age: 52 Year
  Sex: Male
  Weight: 81.63 kg

DRUGS (4)
  1. ANDROSTENEDIONE [Suspect]
     Active Substance: ANDROSTENEDIONE
     Indication: ANDROGEN DEFICIENCY
  2. VIAGRA [Suspect]
     Active Substance: SILDENAFIL CITRATE
     Indication: ERECTILE DYSFUNCTION
     Dosage: 50 MG, MONTHLY (ONCE OR TWICE MONTH, ONCE OR TWICE A MONTH)
     Dates: start: 199911
  3. VIAGRA [Suspect]
     Active Substance: SILDENAFIL CITRATE
     Dosage: 100 MG, UNK
  4. VIAGRA [Suspect]
     Active Substance: SILDENAFIL CITRATE
     Dosage: 50 MG, MONTHLY (ONCE OR TWICE MONTH, ONCE OR TWICE A MONTH)
     Dates: start: 201508, end: 20151208

REACTIONS (2)
  - Tinnitus [Not Recovered/Not Resolved]
  - Drug ineffective [Not Recovered/Not Resolved]

NARRATIVE: CASE EVENT DATE: 1999
